FAERS Safety Report 6755636-X (Version None)
Quarter: 2010Q2

REPORT INFORMATION
  Report Type: 
  Country: None (occurrence: None)
  Receive Date: 20100604
  Receipt Date: 20100519
  Transmission Date: 20101027
  Serious: Yes (Hospitalization, Other)
  Sender: FDA-Public Use
  Company Number: US-BAYER-200936817NA

PATIENT
  Age: 47 Year
  Sex: Female
  Weight: 77 kg

DRUGS (9)
  1. YASMIN [Suspect]
     Indication: CONTRACEPTION
     Route: 048
  2. YAZ [Suspect]
     Indication: DRUG USE FOR UNKNOWN INDICATION
     Route: 048
     Dates: start: 20080101
  3. OCELLA [Suspect]
     Dates: start: 20080701, end: 20090801
  4. LEVOTHYROTINE [Concomitant]
     Route: 065
  5. IRON [Concomitant]
     Route: 065
  6. CIPRO [Concomitant]
     Route: 065
  7. TYLENOL [Concomitant]
     Route: 065
  8. VICODIN [Concomitant]
     Route: 065
  9. WARFARIN SODIUM [Concomitant]
     Route: 065

REACTIONS (9)
  - ARTHRALGIA [None]
  - DEEP VEIN THROMBOSIS [None]
  - DYSPNOEA [None]
  - FATIGUE [None]
  - PAIN IN EXTREMITY [None]
  - PULMONARY EMBOLISM [None]
  - PULMONARY INFARCTION [None]
  - PYREXIA [None]
  - THROMBOSIS [None]
